FAERS Safety Report 21846987 (Version 1)
Quarter: 2023Q1

REPORT INFORMATION
  Report Type: Spontaneous
  Country: FR (occurrence: FR)
  Receive Date: 20230111
  Receipt Date: 20230111
  Transmission Date: 20230418
  Serious: Yes (Other)
  Sender: FDA-Public Use
  Company Number: None

PATIENT
  Age: 67 Year
  Sex: Male

DRUGS (9)
  1. FLUOROURACIL [Suspect]
     Active Substance: FLUOROURACIL
     Indication: Pancreatic carcinoma metastatic
     Dates: start: 20221121, end: 20221121
  2. IRINOTECAN [Suspect]
     Active Substance: IRINOTECAN
     Indication: Pancreatic carcinoma metastatic
     Dosage: STRENGTH- 20MG/ML
     Dates: start: 20221121, end: 20221121
  3. OXALIPLATIN [Suspect]
     Active Substance: OXALIPLATIN
     Indication: Pancreatic carcinoma metastatic
     Dosage: STRENGTH- 5MG/ML
     Dates: start: 20221121, end: 20221121
  4. NOVORAPID [Concomitant]
     Active Substance: INSULIN ASPART
  5. MOVICOL [Concomitant]
     Active Substance: POLYETHYLENE GLYCOL 3350\POTASSIUM CHLORIDE\SODIUM BICARBONATE\SODIUM CHLORIDE
  6. MORPHINE SULFATE [Concomitant]
     Active Substance: MORPHINE SULFATE
  7. LANTUS [Concomitant]
     Active Substance: INSULIN GLARGINE
  8. SKENAN [Concomitant]
     Active Substance: MORPHINE SULFATE
  9. DOLIPRANE [Concomitant]
     Active Substance: ACETAMINOPHEN

REACTIONS (2)
  - Diplopia [Recovered/Resolved]
  - Blindness transient [Recovered/Resolved]

NARRATIVE: CASE EVENT DATE: 20221121
